FAERS Safety Report 9812671 (Version 1)
Quarter: 2014Q1

REPORT INFORMATION
  Report Type: Spontaneous
  Country: DE (occurrence: DE)
  Receive Date: 20140113
  Receipt Date: 20140113
  Transmission Date: 20141002
  Serious: Yes (Other)
  Sender: FDA-Public Use
  Company Number: DE-DRREDDYS-GER/GER/14/0037075

PATIENT
  Age: 35 Year
  Sex: Female

DRUGS (2)
  1. FLUOXETINE [Suspect]
     Indication: DEPRESSION
     Route: 048
     Dates: start: 20081122, end: 20090702
  2. CEFUROXIME [Concomitant]
     Indication: PREMATURE RUPTURE OF MEMBRANES
     Route: 042

REACTIONS (3)
  - Premature rupture of membranes [Unknown]
  - Induced labour [Unknown]
  - Exposure during pregnancy [Unknown]
